FAERS Safety Report 19445389 (Version 1)
Quarter: 2021Q2

REPORT INFORMATION
  Report Type: Spontaneous
  Country: US (occurrence: US)
  Receive Date: 20210622
  Receipt Date: 20210622
  Transmission Date: 20210717
  Serious: Yes (Other)
  Sender: FDA-Public Use
  Company Number: US-AMGEN-USASP2021094609

PATIENT
  Age: 64 Year
  Sex: Female

DRUGS (12)
  1. ATORVASTATIN [Concomitant]
     Active Substance: ATORVASTATIN
     Dosage: 20 MILLIGRAM
  2. LISINOPRIL. [Concomitant]
     Active Substance: LISINOPRIL
     Dosage: 5 MILLIGRAM
  3. ENBREL [Suspect]
     Active Substance: ETANERCEPT
     Indication: PRODUCT USED FOR UNKNOWN INDICATION
     Dosage: 50 MILLIGRAM(4 AUTOINJECTOR)
     Route: 065
  4. PANTOPRAZOLE [Concomitant]
     Active Substance: PANTOPRAZOLE
     Dosage: 40 MILLIGRAM
  5. METOPROLOL SUCCINATE. [Concomitant]
     Active Substance: METOPROLOL SUCCINATE
     Dosage: 50 MILLIGRAM
  6. MELOXICAM. [Concomitant]
     Active Substance: MELOXICAM
     Dosage: 15 MILLIGRAM
  7. HYDROCODONE/ACETAMINOPHEN [Concomitant]
     Active Substance: ACETAMINOPHEN\HYDROCODONE
  8. HYDROCHLOORTHIAZIDE [Concomitant]
     Active Substance: HYDROCHLOROTHIAZIDE
     Dosage: 12.5 MILLIGRAM
  9. OTEZLA [Suspect]
     Active Substance: APREMILAST
     Indication: PSORIATIC ARTHROPATHY
     Dosage: 30 MILLIGRAM, BID
     Route: 048
     Dates: start: 20191016
  10. ISOSORBID DINITRATE [Concomitant]
     Active Substance: ISOSORBIDE DINITRATE
     Dosage: 10 MILLIGRAM
     Route: 048
  11. ELMIRON [Concomitant]
     Active Substance: PENTOSAN POLYSULFATE SODIUM
     Dosage: 100 MILLIGRAM
  12. DULOXETINE DR [Concomitant]
     Active Substance: DULOXETINE
     Dosage: 30 MILLIGRAM

REACTIONS (1)
  - Psoriatic arthropathy [Not Recovered/Not Resolved]
